FAERS Safety Report 6865455-1 (Version None)
Quarter: 2010Q3

REPORT INFORMATION
  Report Type: 
  Country: None (occurrence: None)
  Receive Date: 20100721
  Receipt Date: 20080614
  Transmission Date: 20110219
  Serious: No
  Sender: FDA-Public Use
  Company Number: US-PFIZER INC-2008035767

PATIENT
  Sex: Female
  Weight: 104.5 kg

DRUGS (9)
  1. CHANTIX [Suspect]
     Indication: SMOKING CESSATION THERAPY
     Route: 048
     Dates: start: 20080415
  2. METFORMIN HYDROCHLORIDE [Concomitant]
  3. FEXOFENADINE [Concomitant]
  4. CLARITHROMYCIN [Concomitant]
  5. SEROQUEL [Concomitant]
  6. CLONAZEPAM [Concomitant]
  7. ATENOLOL [Concomitant]
  8. LUNESTA [Concomitant]
  9. HYDROCHLOROTHIAZIDE [Concomitant]

REACTIONS (3)
  - EPISTAXIS [None]
  - FEELING ABNORMAL [None]
  - SPEECH DISORDER [None]
